FAERS Safety Report 8028114-8 (Version None)
Quarter: 2012Q1

REPORT INFORMATION
  Report Type: 
  Country: None (occurrence: None)
  Receive Date: 20120104
  Receipt Date: 20101229
  Transmission Date: 20120608
  Serious: Yes (Hospitalization, Other)
  Sender: FDA-Public Use
  Company Number: ADR-2011-11855

PATIENT
  Sex: Male

DRUGS (2)
  1. LIORESAL [Suspect]
     Indication: MULTIPLE SCLEROSIS
     Dosage: INTRATH.
     Route: 037
  2. LIORESAL [Suspect]
     Indication: MUSCLE SPASTICITY
     Dosage: INTRATH.
     Route: 037

REACTIONS (5)
  - ENTEROCOCCAL INFECTION [None]
  - STREPTOCOCCAL INFECTION [None]
  - MENINGITIS [None]
  - ENCEPHALOPATHY [None]
  - MENTAL STATUS CHANGES [None]
